FAERS Safety Report 6320980-7 (Version None)
Quarter: 2009Q3

REPORT INFORMATION
  Report Type: 
  Country: None (occurrence: None)
  Receive Date: 20090822
  Receipt Date: 20081222
  Transmission Date: 20100115
  Serious: No
  Sender: FDA-Public Use
  Company Number: US-ABBOTT-08P-163-0494201-00

PATIENT
  Sex: Female
  Weight: 49.94 kg

DRUGS (5)
  1. NIASPAN [Suspect]
     Indication: BLOOD CHOLESTEROL INCREASED
     Route: 048
     Dates: start: 20081201, end: 20081219
  2. ASPIRIN [Concomitant]
     Indication: DRUG USE FOR UNKNOWN INDICATION
  3. ACTOS [Concomitant]
     Indication: BLOOD GLUCOSE INCREASED
  4. UNNAMED BLOOD PRESSURE MEDICATION [Concomitant]
     Indication: HYPERTENSION
  5. UNNAMED ANTI-INFLAMMATORY MEDICATION [Concomitant]
     Indication: ARTHRITIS

REACTIONS (3)
  - FLUSHING [None]
  - PILOERECTION [None]
  - SKIN BURNING SENSATION [None]
